FAERS Safety Report 10794688 (Version 1)
Quarter: 2015Q1

REPORT INFORMATION
  Report Type: Report from Study
  Country: US (occurrence: US)
  Receive Date: 20150213
  Receipt Date: 20150213
  Transmission Date: 20150721
  Serious: Yes (Death)
  Sender: FDA-Public Use
  Company Number: PHEH2015US003153

PATIENT
  Age: 90 Year
  Sex: Male

DRUGS (1)
  1. EXJADE [Suspect]
     Active Substance: DEFERASIROX
     Indication: IRON OVERLOAD
     Dosage: 2000 MG, EVERY MORNING
     Route: 048
     Dates: start: 20140211

REACTIONS (1)
  - Death [Fatal]

NARRATIVE: CASE EVENT DATE: 20150207
